FAERS Safety Report 15460839 (Version 4)
Quarter: 2019Q1

REPORT INFORMATION
  Report Type: Report from Study
  Country: US (occurrence: US)
  Receive Date: 20181003
  Receipt Date: 20190305
  Transmission Date: 20190417
  Serious: Yes (Hospitalization)
  Sender: FDA-Public Use
  Company Number: US-ACTELION-A-NJ2018-179613

PATIENT
  Sex: Female
  Weight: 68.03 kg

DRUGS (4)
  1. LETAIRIS [Concomitant]
     Active Substance: AMBRISENTAN
  2. OPSUMIT [Concomitant]
     Active Substance: MACITENTAN
     Route: 048
  3. XARELTO [Concomitant]
     Active Substance: RIVAROXABAN
  4. VELETRI [Suspect]
     Active Substance: EPOPROSTENOL
     Indication: PULMONARY ARTERIAL HYPERTENSION
     Dosage: 40 NG/KG, PER MIN
     Route: 042
     Dates: end: 20190119

REACTIONS (2)
  - Lung transplant [Recovering/Resolving]
  - Myocardial infarction [Unknown]
